FAERS Safety Report 15481964 (Version 1)
Quarter: 2018Q4

REPORT INFORMATION
  Report Type: Spontaneous
  Country: US (occurrence: US)
  Receive Date: 20181003
  Receipt Date: 20181003
  Transmission Date: 20190205
  Serious: Yes (Other)
  Sender: FDA-Public Use
  Company Number: None

PATIENT
  Age: 62 Year
  Sex: Female
  Weight: 67.5 kg

DRUGS (8)
  1. SANCUSO [Concomitant]
     Active Substance: GRANISETRON
  2. TYLENOL WITH CODEINE [Concomitant]
     Active Substance: ACETAMINOPHEN\CODEINE PHOSPHATE
  3. PROMACTA [Suspect]
     Active Substance: ELTROMBOPAG OLAMINE
     Indication: COLON CANCER
     Route: 048
     Dates: start: 20180131
  4. STIOLTO RESPIMAT [Concomitant]
     Active Substance: OLODATEROL HYDROCHLORIDE\TIOTROPIUM BROMIDE MONOHYDRATE
  5. FENTANYL. [Concomitant]
     Active Substance: FENTANYL
  6. METOPROLOL. [Concomitant]
     Active Substance: METOPROLOL
  7. CLARITIN [Concomitant]
     Active Substance: LORATADINE
  8. PROMACTA [Suspect]
     Active Substance: ELTROMBOPAG OLAMINE
     Indication: METASTASES TO LIVER
     Route: 048
     Dates: start: 20180131

REACTIONS (1)
  - Confusional state [None]

NARRATIVE: CASE EVENT DATE: 20181003
